FAERS Safety Report 8018646-0 (Version None)
Quarter: 2012Q1

REPORT INFORMATION
  Report Type: 
  Country: None (occurrence: None)
  Receive Date: 20120103
  Receipt Date: 20111214
  Transmission Date: 20120608
  Serious: Yes (Hospitalization)
  Sender: FDA-Public Use
  Company Number: CA-US-EMD SERONO, INC.-230036K08CAN

PATIENT
  Sex: Female

DRUGS (15)
  1. NEXIUM [Concomitant]
  2. OXYBUTININ [Concomitant]
  3. BISOPROLOL [Concomitant]
  4. PROPAFENONE HCL [Concomitant]
  5. WELLBUTRIN [Concomitant]
  6. HYDROCHLORIDE [Concomitant]
  7. CLONAZEPAM [Concomitant]
  8. INOCORT OINTMENT [Concomitant]
  9. SYNTHROID [Concomitant]
  10. CETIRIZINE HCL [Concomitant]
  11. REBIF [Suspect]
     Indication: RELAPSING-REMITTING MULTIPLE SCLEROSIS
     Route: 058
     Dates: start: 19991001
  12. AVALIDE [Concomitant]
  13. VITAMIN D [Concomitant]
  14. CALCIUM ACETATE [Concomitant]
  15. COUMADIN [Concomitant]

REACTIONS (3)
  - HYPERTHYROIDISM [None]
  - PORPHYRIA NON-ACUTE [None]
  - TACHYCARDIA [None]
